FAERS Safety Report 4876934-0 (Version None)
Quarter: 2006Q1

REPORT INFORMATION
  Report Type: 
  Country: None (occurrence: None)
  Receive Date: 20060110
  Receipt Date: 20051229
  Transmission Date: 20060701
  Serious: Yes (Hospitalization)
  Sender: FDA-Public Use
  Company Number: JP-ROCHE-430768

PATIENT
  Age: 40 Year
  Sex: Female

DRUGS (6)
  1. TAMIFLU [Suspect]
     Indication: INFLUENZA
     Route: 048
     Dates: start: 20051221, end: 20051224
  2. EXCEGRAN [Concomitant]
     Route: 048
  3. PHENYTOIN SODIUM CAP [Concomitant]
     Route: 048
  4. TEGRETOL [Concomitant]
     Route: 048
  5. SELBEX [Concomitant]
     Route: 048
  6. ACETAMINOPHEN [Concomitant]
     Route: 048

REACTIONS (1)
  - SUICIDAL IDEATION [None]
